FAERS Safety Report 9993772 (Version 2)
Quarter: 2014Q2

REPORT INFORMATION
  Report Type: Spontaneous
  Country: FR (occurrence: FR)
  Receive Date: 20140310
  Receipt Date: 20140521
  Transmission Date: 20141212
  Serious: Yes (Other)
  Sender: FDA-Public Use
  Company Number: PHHY2014FR028700

PATIENT
  Sex: Female

DRUGS (3)
  1. NEORAL [Suspect]
     Indication: RENAL TRANSPLANT
     Dosage: 125 MG, (75 MG MORNING AND 50 MG  EVENING)
     Dates: start: 199801
  2. CELLCEPT [Suspect]
     Indication: TRANSPLANT
     Dosage: 500 MG, BID FOR SEVERAL YEARS
     Dates: start: 2009
  3. CORTANCYL [Concomitant]
     Dosage: DOSE PROGRESSIVELY DECREASED
     Dates: start: 1998

REACTIONS (3)
  - Scar [Unknown]
  - Neoplasm malignant [Unknown]
  - Skin fragility [Unknown]
